FAERS Safety Report 7020019-4 (Version None)
Quarter: 2010Q3

REPORT INFORMATION
  Report Type: 
  Country: None (occurrence: None)
  Receive Date: 20100927
  Receipt Date: 20100916
  Transmission Date: 20110219
  Serious: Yes (Hospitalization)
  Sender: FDA-Public Use
  Company Number: DSA_43964_2010

PATIENT
  Sex: Female
  Weight: 49.4421 kg

DRUGS (12)
  1. CARDIZEM [Suspect]
     Indication: ATRIAL FIBRILLATION
     Dosage: (DF)
     Dates: start: 20100101
  2. MACROBID /00024401/ (NOT SPECIFIED) [Suspect]
     Indication: SEPSIS
     Dosage: (DF)
     Dates: start: 20100101
  3. LISINOPRIL [Suspect]
     Indication: ATRIAL FIBRILLATION
     Dosage: (20 MG DAILY ORAL)
     Route: 048
     Dates: start: 20100101
  4. DIGOXIN [Suspect]
     Indication: ATRIAL FIBRILLATION
     Dosage: (DF ORAL)
     Route: 048
     Dates: start: 20100101
  5. SYNTHROID [Suspect]
     Indication: THYROIDECTOMY
     Dosage: (112 MCG DAILY ORAL), (137 MCG DAILY ORAL)
     Route: 048
     Dates: start: 20040101, end: 20091201
  6. SYNTHROID [Suspect]
     Indication: THYROIDECTOMY
     Dosage: (112 MCG DAILY ORAL), (137 MCG DAILY ORAL)
     Route: 048
     Dates: start: 20091201, end: 20100101
  7. SYNTHROID [Suspect]
     Indication: THYROIDECTOMY
     Dosage: (112 MCG DAILY ORAL), (137 MCG DAILY ORAL)
     Route: 048
     Dates: start: 20100101
  8. AMIODARONE [Suspect]
     Indication: ATRIAL FIBRILLATION
     Dosage: (DF INTRAVENOUS)
     Route: 042
     Dates: start: 20100101, end: 20100101
  9. PREDNISONE [Suspect]
     Indication: COLITIS ULCERATIVE
     Dosage: (15 MG)
  10. PREDNISONE [Suspect]
     Indication: POLYMYALGIA RHEUMATICA
     Dosage: (15 MG)
  11. SULFASALAZINE [Suspect]
     Indication: COLITIS ULCERATIVE
     Dosage: (500 MG QID ORAL)
     Route: 048
     Dates: end: 20100601
  12. KLOR-CON [Concomitant]

REACTIONS (11)
  - APPETITE DISORDER [None]
  - BONE DISORDER [None]
  - DEAFNESS [None]
  - DEPRESSION [None]
  - DIZZINESS [None]
  - MUSCULAR WEAKNESS [None]
  - PAIN [None]
  - SEPSIS [None]
  - TOOTH DISORDER [None]
  - VISION BLURRED [None]
  - WEIGHT ABNORMAL [None]
